FAERS Safety Report 8927540 (Version 1)
Quarter: 2012Q4

REPORT INFORMATION
  Report Type: 
  Country: US (occurrence: US)
  Receive Date: 20121127
  Receipt Date: 20121127
  Transmission Date: 20130627
  Serious: No
  Sender: FDA-Public Use
  Company Number: US-B.I. PHARMACEUTICALS,INC./RIDGEFIELD-2012-BI-01103BP

PATIENT
  Sex: Female
  Weight: 61 kg

DRUGS (3)
  1. PRADAXA [Suspect]
     Indication: ATRIAL FIBRILLATION
     Dosage: 300 mg
     Route: 048
     Dates: start: 2011
  2. PRADAXA [Suspect]
     Dosage: 150 mg
     Route: 048
     Dates: start: 201209
  3. METOPROLOL [Concomitant]
     Indication: HYPERTENSION
     Dosage: 50 mg
     Route: 048

REACTIONS (4)
  - Rash macular [Recovered/Resolved]
  - Hypotension [Recovered/Resolved]
  - Contusion [Not Recovered/Not Resolved]
  - Rash pruritic [Not Recovered/Not Resolved]
